FAERS Safety Report 19355404 (Version 1)
Quarter: 2021Q2

REPORT INFORMATION
  Report Type: Spontaneous
  Country: US (occurrence: US)
  Receive Date: 20210601
  Receipt Date: 20210601
  Transmission Date: 20210717
  Serious: Yes (Death, Hospitalization)
  Sender: FDA-Public Use
  Company Number: None

PATIENT
  Sex: Female

DRUGS (1)
  1. CAPECITABINE 500MG NOVADOZ PHARMACEUTICALS [Suspect]
     Active Substance: CAPECITABINE
     Indication: PANCREATIC CARCINOMA
     Dosage: 1000 MG BY MOUTH TWICE DAILY FOR 7 DAYS ON, THEN 7 DAYS OFF, ALTERNATE 7 DAYS ON AND 7?DAYS OFF? 28?DAY CYCLE.
     Route: 048
     Dates: start: 202104, end: 20210409

REACTIONS (1)
  - Malaise [None]
